FAERS Safety Report 5573840-3 (Version None)
Quarter: 2007Q4

REPORT INFORMATION
  Report Type: 
  Country: None (occurrence: None)
  Receive Date: 20071226
  Receipt Date: 20071214
  Transmission Date: 20080405
  Serious: Yes (Other)
  Sender: FDA-Public Use
  Company Number: FR-PFIZER INC-2007106389

PATIENT
  Sex: Male

DRUGS (4)
  1. NEURONTIN [Suspect]
     Indication: NEURALGIA
  2. BISOPROLOL FUMARATE AND HYDROCHLOROTHIAZIDE [Concomitant]
  3. RAMIPRIL [Concomitant]
  4. INSULIN [Concomitant]

REACTIONS (3)
  - BLOOD LACTATE DEHYDROGENASE INCREASED [None]
  - CYTOLYTIC HEPATITIS [None]
  - TRANSAMINASES INCREASED [None]
